FAERS Safety Report 5822242-0 (Version None)
Quarter: 2008Q3

REPORT INFORMATION
  Report Type: 
  Country: None (occurrence: None)
  Receive Date: 20080725
  Receipt Date: 20080507
  Transmission Date: 20090109
  Serious: No
  Sender: FDA-Public Use
  Company Number: US-AMGEN-KDL268949

PATIENT
  Sex: Female
  Weight: 104 kg

DRUGS (35)
  1. PROCRIT [Suspect]
     Indication: ANAEMIA
     Route: 058
     Dates: start: 20051207
  2. QUINIDINE HCL [Concomitant]
     Route: 048
     Dates: start: 20040101
  3. PREDNISONE TAB [Concomitant]
     Route: 048
     Dates: start: 20040101
  4. AMBIEN [Concomitant]
     Dates: start: 20040101
  5. IMURAN [Concomitant]
     Route: 048
     Dates: start: 20000118
  6. PRAVASTATIN [Concomitant]
     Route: 048
     Dates: start: 20040101
  7. ESTRADIOL [Concomitant]
     Route: 048
  8. BLOOD CELLS, PACKED HUMAN [Concomitant]
  9. CITALOPRAM HYDROBROMIDE [Concomitant]
     Dates: start: 20040101
  10. PROZAC [Concomitant]
     Route: 048
  11. TACROLIMUS [Concomitant]
     Dates: start: 20000228
  12. CLONIDINE [Concomitant]
     Route: 048
  13. ADVAIR DISKUS 100/50 [Concomitant]
     Route: 055
  14. AVELOX [Concomitant]
     Route: 048
     Dates: start: 20080414, end: 20080428
  15. HYDROMET [Concomitant]
     Route: 048
  16. FAMOTIDINE [Concomitant]
     Route: 048
  17. MEDROXYPROGESTERONE [Concomitant]
     Route: 048
  18. AMOXICILLIN [Concomitant]
  19. TRIAMTERENE AND HYDROCHLOROTHIAZIDE [Concomitant]
  20. NITROGLYCERIN [Concomitant]
     Route: 060
  21. PRO-AIR (PARKE DAVIS) [Concomitant]
  22. LORAZEPAM [Concomitant]
     Route: 048
     Dates: start: 20080207, end: 20080208
  23. OXYCODONE HCL [Concomitant]
     Route: 048
     Dates: start: 20080207, end: 20080208
  24. PENTOXIFYLLINE [Concomitant]
     Route: 048
  25. FLUTICASONE PROPIONATE [Concomitant]
  26. QVAR 40 [Concomitant]
     Route: 055
  27. BENZONATATE [Concomitant]
     Route: 048
  28. PROGRAF [Concomitant]
     Route: 048
  29. COZAAR [Concomitant]
     Route: 048
  30. CHLOR-TRIMETON [Concomitant]
     Route: 048
  31. TRIAMTERENE AND HYDROCHLOROTHIAZIDE [Concomitant]
  32. BACLOFEN [Concomitant]
  33. QUININE SULFATE [Concomitant]
  34. ASPIRIN [Concomitant]
     Route: 048
  35. ZOLPIDEM [Concomitant]
     Route: 048
     Dates: start: 20080211

REACTIONS (2)
  - DRUG HYPERSENSITIVITY [None]
  - THERAPEUTIC RESPONSE DECREASED [None]
